FAERS Safety Report 18136587 (Version 24)
Quarter: 2025Q2

REPORT INFORMATION
  Report Type: Report from Study
  Country: US (occurrence: US)
  Receive Date: 20200811
  Receipt Date: 20250616
  Transmission Date: 20250717
  Serious: Yes (Hospitalization, Other)
  Sender: TAKEDA
  Company Number: US-SHIRE-US202010509

PATIENT
  Age: 64 Year
  Sex: Female
  Weight: 67 kg

DRUGS (35)
  1. HUMAN IMMUNOGLOBULIN G [Suspect]
     Active Substance: HUMAN IMMUNOGLOBULIN G
     Indication: Immunodeficiency common variable
     Dosage: 12 GRAM, 1/WEEK
     Dates: start: 20161024
  2. HUMAN IMMUNOGLOBULIN G [Suspect]
     Active Substance: HUMAN IMMUNOGLOBULIN G
     Dosage: 12 GRAM, 1/WEEK
     Dates: start: 20161026
  3. HUMAN IMMUNOGLOBULIN G [Suspect]
     Active Substance: HUMAN IMMUNOGLOBULIN G
     Dosage: 20 GRAM, Q2WEEKS
  4. TYLENOL [Suspect]
     Active Substance: ACETAMINOPHEN
     Indication: Product used for unknown indication
  5. DIPHENHYDRAMINE [Concomitant]
     Active Substance: DIPHENHYDRAMINE
  6. SUMATRIPTAN SUCCINATE [Concomitant]
     Active Substance: SUMATRIPTAN SUCCINATE
  7. CLARITIN-D NOS [Concomitant]
     Active Substance: LORATADINE\PSEUDOEPHEDRINE SULFATE
  8. EPINEPHRINE [Concomitant]
     Active Substance: EPINEPHRINE
  9. ATORVASTATIN CALCIUM [Concomitant]
     Active Substance: ATORVASTATIN CALCIUM
  10. DULOXETINE HYDROCHLORIDE [Concomitant]
     Active Substance: DULOXETINE HYDROCHLORIDE
  11. DYMISTA [Concomitant]
     Active Substance: AZELASTINE HYDROCHLORIDE\FLUTICASONE PROPIONATE
  12. METOPROLOL TARTRATE [Concomitant]
     Active Substance: METOPROLOL TARTRATE
  13. TRIAZOLAM [Concomitant]
     Active Substance: TRIAZOLAM
  14. VITAMIN D [Concomitant]
     Active Substance: VITAMIN D NOS
  15. AZITHROMYCIN [Concomitant]
     Active Substance: AZITHROMYCIN
  16. ACETAMINOPHEN [Concomitant]
     Active Substance: ACETAMINOPHEN
  17. CEVIMELINE HYDROCHLORIDE [Concomitant]
     Active Substance: CEVIMELINE HYDROCHLORIDE
  18. XELJANZ [Concomitant]
     Active Substance: TOFACITINIB CITRATE
  19. GABAPENTIN [Concomitant]
     Active Substance: GABAPENTIN
  20. OXYCODONE HYDROCHLORIDE [Concomitant]
     Active Substance: OXYCODONE HYDROCHLORIDE
  21. PROAIR HFA [Concomitant]
     Active Substance: ALBUTEROL SULFATE
  22. TIZANIDINE HYDROCHLORIDE [Concomitant]
     Active Substance: TIZANIDINE HYDROCHLORIDE
  23. INCRUSE ELLIPTA [Concomitant]
     Active Substance: UMECLIDINIUM BROMIDE
  24. CEFTRIAXONE [Concomitant]
     Active Substance: CEFTRIAXONE
  25. FISH OIL [Concomitant]
     Active Substance: FISH OIL
  26. LIDOCAINE [Concomitant]
     Active Substance: LIDOCAINE
  27. PROVENTIL [Concomitant]
     Active Substance: ALBUTEROL
  28. VITAMIN D2 [Concomitant]
     Active Substance: ERGOCALCIFEROL
  29. INCRUSE ELLIPTA [Concomitant]
     Active Substance: UMECLIDINIUM BROMIDE
  30. DIPHENHYDRAMINE HYDROCHLORIDE [Concomitant]
     Active Substance: DIPHENHYDRAMINE HYDROCHLORIDE
  31. Melatonin maximum strength [Concomitant]
  32. BENEFIBER [Concomitant]
     Active Substance: STARCH, WHEAT
  33. Allergy relief [Concomitant]
  34. VITAMIN B [Concomitant]
     Active Substance: VITAMIN B
  35. BANOPHEN [Concomitant]
     Active Substance: DIPHENHYDRAMINE HYDROCHLORIDE
     Indication: Product used for unknown indication

REACTIONS (23)
  - Lower respiratory tract infection [Unknown]
  - Thermal burn [Unknown]
  - Urinary tract infection [Unknown]
  - Gastric infection [Unknown]
  - Influenza [Unknown]
  - Dermatitis contact [Unknown]
  - Gastroenteritis viral [Unknown]
  - Weight fluctuation [Unknown]
  - Ear infection [Unknown]
  - Weight decreased [Unknown]
  - Bronchitis [Unknown]
  - Illness [Unknown]
  - Lower limb fracture [Unknown]
  - Fall [Unknown]
  - Ear disorder [Unknown]
  - Product dose omission issue [Unknown]
  - Limb injury [Unknown]
  - Cystitis [Unknown]
  - Skin injury [Unknown]
  - Upper respiratory tract infection [Unknown]
  - Sinusitis [Unknown]
  - Rash [Unknown]
  - Hepatic enzyme increased [Unknown]

NARRATIVE: CASE EVENT DATE: 20230206
